FAERS Safety Report 21811899 (Version 2)
Quarter: 2024Q2

REPORT INFORMATION
  Report Type: Spontaneous
  Country: KR (occurrence: KR)
  Receive Date: 20230103
  Receipt Date: 20240517
  Transmission Date: 20240715
  Serious: Yes (Death)
  Sender: FDA-Public Use
  Company Number: KR-PFIZER INC-PV202200133910

PATIENT
  Age: 64 Year
  Sex: Female

DRUGS (5)
  1. IBRANCE [Suspect]
     Active Substance: PALBOCICLIB
     Indication: Retroperitoneal cancer
     Dosage: 125 MG (1 CAPSULE), CYCLIC (ONCE A DAY FOR 14 DAYS; TAKE WITH BREAKFAST)
     Route: 048
  2. MYPOL [CODEINE PHOSPHATE;IBUPROFEN;PARACETAMOL] [Concomitant]
     Dosage: 2 DF, 3X/DAY (FOR 14 DAYS, TAKE AT 6AM, 2PM, 10PM)
     Route: 048
  3. OXYCODONE HYDROCHLORIDE [Concomitant]
     Active Substance: OXYCODONE HYDROCHLORIDE
     Dosage: 1 DF, 4X/DAY (TAKE WHEN THE SYMPTOMS ONSET)
     Route: 048
  4. NALOXONE HYDROCHLORIDE\OXYCODONE HYDROCHLORIDE [Concomitant]
     Active Substance: NALOXONE HYDROCHLORIDE\OXYCODONE HYDROCHLORIDE
     Dosage: 1 DF, 2X/DAY (FOR 14 DAYS, TAKE AFTER BREAKFAST AND BEFORE BED)
     Route: 048
  5. MEGACE F [Concomitant]
     Indication: Decreased appetite
     Dosage: 1 DF, AS NEEDED (TAKE AFTER BREAKFAST, IN CASE OF DECREASED APPETITE)
     Route: 048

REACTIONS (2)
  - Death [Fatal]
  - Off label use [Unknown]

NARRATIVE: CASE EVENT DATE: 20220101
